FAERS Safety Report 16465152 (Version 1)
Quarter: 2019Q2

REPORT INFORMATION
  Report Type: Report from Study
  Country: CA (occurrence: CA)
  Receive Date: 20190621
  Receipt Date: 20190621
  Transmission Date: 20190711
  Serious: Yes (Other)
  Sender: FDA-Public Use
  Company Number: CA-PFIZER INC-2019264711

PATIENT
  Age: 64 Year
  Sex: Female
  Weight: 111 kg

DRUGS (3)
  1. REMICADE [Suspect]
     Active Substance: INFLIXIMAB
     Indication: PSORIASIS
     Dosage: 500 MG, 1 EVERY 8 WEEK (S)
     Route: 042
  2. METHOTREXATE SODIUM. [Suspect]
     Active Substance: METHOTREXATE SODIUM
     Dosage: 7 MG, WEEKLY
  3. REMICADE [Suspect]
     Active Substance: INFLIXIMAB
     Indication: PSORIASIS
     Dosage: 500 MG, 1 EVERY 6 WEEK (S)

REACTIONS (4)
  - Psoriasis [Unknown]
  - Influenza [Unknown]
  - Liver disorder [Unknown]
  - Psoriatic arthropathy [Unknown]
